FAERS Safety Report 25241647 (Version 3)
Quarter: 2025Q2

REPORT INFORMATION
  Report Type: Report from Study
  Country: US (occurrence: US)
  Receive Date: 20250426
  Receipt Date: 20250530
  Transmission Date: 20250717
  Serious: Yes (Hospitalization, Other)
  Sender: ABBVIE
  Company Number: US-ABBVIE-6245508

PATIENT
  Age: 70 Year
  Sex: Male
  Weight: 61.234 kg

DRUGS (4)
  1. RINVOQ [Suspect]
     Active Substance: UPADACITINIB
     Indication: Crohn^s disease
     Route: 048
     Dates: start: 20240111, end: 20250413
  2. DOXYCYCLINE [Concomitant]
     Active Substance: DOXYCYCLINE
     Indication: Renal disorder
  3. MINOCYCLINE [Concomitant]
     Active Substance: MINOCYCLINE HYDROCHLORIDE
     Indication: Renal disorder
  4. CABERGOLINE [Suspect]
     Active Substance: CABERGOLINE
     Indication: Product used for unknown indication
     Route: 065

REACTIONS (15)
  - Renal failure [Recovering/Resolving]
  - Gait disturbance [Recovered/Resolved]
  - Blindness [Unknown]
  - Fatigue [Recovered/Resolved]
  - Gait inability [Unknown]
  - Abdominal pain upper [Recovered/Resolved]
  - Nausea [Recovering/Resolving]
  - Lip blister [Recovered/Resolved]
  - Oral mucosal blistering [Recovered/Resolved]
  - Decreased appetite [Recovering/Resolving]
  - Herpes virus infection [Unknown]
  - Tremor [Unknown]
  - Weight decreased [Unknown]
  - Hospitalisation [Unknown]
  - Herpes zoster [Unknown]

NARRATIVE: CASE EVENT DATE: 20240101
